FAERS Safety Report 6391932-6 (Version None)
Quarter: 2009Q4

REPORT INFORMATION
  Report Type: 
  Country: None (occurrence: None)
  Receive Date: 20091007
  Receipt Date: 20090929
  Transmission Date: 20100525
  Serious: Yes (Hospitalization)
  Sender: FDA-Public Use
  Company Number: A0790203A

PATIENT
  Age: 63 Year
  Sex: Female

DRUGS (1)
  1. AVANDARYL [Suspect]
     Route: 065
     Dates: start: 20030601, end: 20070429

REACTIONS (2)
  - MYOCARDIAL INFARCTION [None]
  - MYOCARDIAL ISCHAEMIA [None]
